FAERS Safety Report 12330161 (Version 1)
Quarter: 2016Q2

REPORT INFORMATION
  Report Type: Spontaneous
  Country: JP (occurrence: JP)
  Receive Date: 20160504
  Receipt Date: 20160504
  Transmission Date: 20160815
  Serious: Yes (Death, Hospitalization)
  Sender: FDA-Public Use
  Company Number: JP-CIPLA LTD.-2016JP04452

PATIENT

DRUGS (2)
  1. WARFARIN [Suspect]
     Active Substance: WARFARIN
     Dosage: UNK, RESUMPTION ON DAY 3 OF HOSPITALIZATION
     Route: 065
  2. WARFARIN [Suspect]
     Active Substance: WARFARIN
     Indication: THROMBOSIS PROPHYLAXIS
     Dosage: UNK, PREADMISSION
     Route: 065

REACTIONS (4)
  - Death [Fatal]
  - Putamen haemorrhage [Unknown]
  - Haematoma [Unknown]
  - Thalamus haemorrhage [Unknown]
